FAERS Safety Report 10719284 (Version 3)
Quarter: 2015Q2

REPORT INFORMATION
  Report Type: Spontaneous
  Country: JP (occurrence: JP)
  Receive Date: 20150119
  Receipt Date: 20150618
  Transmission Date: 20150821
  Serious: Yes (Death, Hospitalization)
  Sender: FDA-Public Use
  Company Number: JP-ROCHE-1523032

PATIENT
  Age: 74 Year
  Sex: Male
  Weight: 60 kg

DRUGS (9)
  1. ACTEMRA [Suspect]
     Active Substance: TOCILIZUMAB
     Indication: RHEUMATOID ARTHRITIS
     Dosage: MOST RECENT DOSE WAS TAKEN ON 11/DEC/2014
     Route: 041
     Dates: start: 20141113
  2. ASVERIN (JAPAN) [Concomitant]
     Route: 048
     Dates: start: 20140924
  3. LIPITOR [Concomitant]
     Active Substance: ATORVASTATIN CALCIUM
     Route: 048
     Dates: start: 2006
  4. BAYASPIRIN [Concomitant]
     Active Substance: ASPIRIN
     Route: 048
     Dates: start: 2006
  5. PREDONINE [Concomitant]
     Active Substance: PREDNISOLONE\PREDNISOLONE ACETATE\PREDNISOLONE SODIUM SUCCINATE
     Indication: RHEUMATOID ARTHRITIS
     Route: 048
     Dates: start: 20140916
  6. RIMATIL [Concomitant]
     Active Substance: BUCILLAMINE
     Indication: RHEUMATOID ARTHRITIS
     Route: 048
     Dates: start: 20140916, end: 20141217
  7. METGLUCO [Concomitant]
     Active Substance: METFORMIN HYDROCHLORIDE
     Route: 048
     Dates: start: 2006
  8. SUREPOST [Concomitant]
     Active Substance: REPAGLINIDE
     Route: 048
     Dates: start: 2006
  9. PREDONINE [Concomitant]
     Active Substance: PREDNISOLONE\PREDNISOLONE ACETATE\PREDNISOLONE SODIUM SUCCINATE
     Route: 048
     Dates: start: 20141217, end: 2015

REACTIONS (2)
  - Interstitial lung disease [Recovering/Resolving]
  - Lung neoplasm malignant [Fatal]

NARRATIVE: CASE EVENT DATE: 20141217
